FAERS Safety Report 15867600 (Version 2)
Quarter: 2020Q1

REPORT INFORMATION
  Report Type: Report from Study
  Country: JP (occurrence: JP)
  Receive Date: 20190125
  Receipt Date: 20200304
  Transmission Date: 20200409
  Serious: Yes (Hospitalization)
  Sender: FDA-Public Use
  Company Number: JP-ACTELION-A-CH2019-185280

PATIENT
  Age: 39 Year
  Sex: Female

DRUGS (30)
  1. OPSUMIT [Suspect]
     Active Substance: MACITENTAN
     Indication: PULMONARY ARTERIAL HYPERTENSION
     Dosage: 10 MG, QD
     Route: 048
     Dates: start: 20161207
  2. TULOBUTEROL [Concomitant]
     Active Substance: TULOBUTEROL
  3. NALFURAFINE HYDROCHLORIDE [Concomitant]
     Active Substance: NALFURAFINE HYDROCHLORIDE
  4. ARIPIPRAZOLE. [Concomitant]
     Active Substance: ARIPIPRAZOLE
  5. EPOPROSTENOL ACT [Suspect]
     Active Substance: EPOPROSTENOL
     Indication: PULMONARY ARTERIAL HYPERTENSION
     Dosage: UNK
     Route: 042
     Dates: end: 20180303
  6. TRAMCET [Concomitant]
     Active Substance: ACETAMINOPHEN\TRAMADOL
  7. RIVOTRIL [Concomitant]
     Active Substance: CLONAZEPAM
  8. CARBOCISTEINE [Concomitant]
     Active Substance: CARBOCYSTEINE
  9. NAUZELIN [Concomitant]
     Active Substance: DOMPERIDONE
  10. ABILIFY [Concomitant]
     Active Substance: ARIPIPRAZOLE
  11. SILECE [Concomitant]
     Active Substance: FLUNITRAZEPAM
  12. LOPEMIN [Concomitant]
  13. TREPROST [Concomitant]
     Active Substance: TREPROSTINIL
  14. REBAMIPIDE [Concomitant]
     Active Substance: REBAMIPIDE
  15. CORTRIL [Concomitant]
     Active Substance: HYDROCORTISONE
  16. FERROUS CITRATE NA [Concomitant]
     Active Substance: SODIUM FERROUS CITRATE
  17. SEROQUEL [Concomitant]
     Active Substance: QUETIAPINE FUMARATE
  18. LAC-B [Concomitant]
     Active Substance: BIFIDOBACTERIUM SPP.
  19. REMERON [Concomitant]
     Active Substance: MIRTAZAPINE
  20. BROTIZOLAM [Concomitant]
     Active Substance: BROTIZOLAM
  21. OXYGEN. [Concomitant]
     Active Substance: OXYGEN
  22. NEXIUM [Concomitant]
     Active Substance: ESOMEPRAZOLE MAGNESIUM
  23. QUETIAPINE. [Concomitant]
     Active Substance: QUETIAPINE
  24. EXCEGRAN [Concomitant]
     Active Substance: ZONISAMIDE
  25. MIYA-BM [Concomitant]
     Active Substance: CLOSTRIDIUM BUTYRICUM SPORES STRAIN M-55
  26. CALTAN [Concomitant]
     Active Substance: CALCIUM CARBONATE
  27. BISOLVON [Concomitant]
     Active Substance: BROMHEXINE HYDROCHLORIDE
  28. ADEMPAS [Concomitant]
     Active Substance: RIOCIGUAT
  29. LANTHANUM CARBONATE. [Concomitant]
     Active Substance: LANTHANUM CARBONATE
  30. REVATIO [Concomitant]
     Active Substance: SILDENAFIL CITRATE

REACTIONS (5)
  - Cellulitis [Recovered/Resolved]
  - Cataract operation [Unknown]
  - Cataract [Recovered/Resolved]
  - Device related infection [Recovered/Resolved]
  - Catheter management [Unknown]

NARRATIVE: CASE EVENT DATE: 20180125
